FAERS Safety Report 8589588-7 (Version None)
Quarter: 2012Q3

REPORT INFORMATION
  Report Type: 
  Country: None (occurrence: None)
  Receive Date: 20120813
  Receipt Date: 20120806
  Transmission Date: 20120928
  Serious: Yes (Other)
  Sender: FDA-Public Use
  Company Number: US-ACTELION-A-NJ2012-65418

PATIENT
  Age: 82 Year
  Sex: Male

DRUGS (2)
  1. TRACLEER [Suspect]
     Indication: PULMONARY ARTERIAL HYPERTENSION
     Dosage: 125 MG, BID
     Route: 048
     Dates: start: 20120413
  2. TRACLEER [Suspect]
     Dosage: 62.5 MG, BID
     Route: 048
     Dates: start: 20120317, end: 20120412

REACTIONS (4)
  - HAEMOGLOBIN DECREASED [None]
  - RED BLOOD CELL MORPHOLOGY ABNORMAL [None]
  - ANAEMIA [None]
  - HAEMATOCRIT DECREASED [None]
